FAERS Safety Report 10174859 (Version 2)
Quarter: 2014Q2

REPORT INFORMATION
  Report Type: Report from Study
  Country: US (occurrence: US)
  Receive Date: 20140515
  Receipt Date: 20140515
  Transmission Date: 20141212
  Serious: Yes (Other)
  Sender: FDA-Public Use
  Company Number: PHEH2014US008269

PATIENT
  Sex: Female
  Weight: 99.77 kg

DRUGS (1)
  1. GILENYA [Suspect]
     Indication: MULTIPLE SCLEROSIS
     Dosage: 0.5 MG, QD
     Route: 048
     Dates: start: 20130911

REACTIONS (9)
  - Cerebellar syndrome [Unknown]
  - Balance disorder [Unknown]
  - Fall [Unknown]
  - Pain [Unknown]
  - Diplopia [Unknown]
  - Urinary incontinence [Unknown]
  - Muscle spasticity [Unknown]
  - Pollakiuria [Unknown]
  - Depression [Unknown]
